FAERS Safety Report 5703542-1 (Version None)
Quarter: 2008Q2

REPORT INFORMATION
  Report Type: 
  Country: None (occurrence: None)
  Receive Date: 20080409
  Receipt Date: 20080331
  Transmission Date: 20081010
  Serious: Yes (Hospitalization)
  Sender: FDA-Public Use
  Company Number: CHPA2007US09756

PATIENT
  Age: 57 Year
  Sex: Male

DRUGS (3)
  1. LACTULOSE [Suspect]
     Indication: CONSTIPATION
     Dosage: 30 ML, TID, ORAL; 45 ML, QID,; 60 ML, QID, ORAL; DAILY ENEMAS WERE GIVEN, RECTAL
  2. DULCOLAX [Suspect]
     Indication: CONSTIPATION
     Dosage: EACH EVENING,
  3. NEOMYCIN [Suspect]
     Dosage: 2 G, QD,

REACTIONS (7)
  - ABDOMINAL PAIN [None]
  - COLONIC ATONY [None]
  - CONSTIPATION [None]
  - FAECALOMA [None]
  - MEGACOLON [None]
  - PNEUMATOSIS INTESTINALIS [None]
  - PNEUMOPERITONEUM [None]
